FAERS Safety Report 15772692 (Version 2)
Quarter: 2019Q1

REPORT INFORMATION
  Report Type: Report from Study
  Country: US (occurrence: US)
  Receive Date: 20181228
  Receipt Date: 20190107
  Transmission Date: 20190417
  Serious: Yes (Hospitalization)
  Sender: FDA-Public Use
  Company Number: US-EXELIXIS-CABO-18017869

PATIENT
  Age: 70 Year
  Sex: Male

DRUGS (15)
  1. XGEVA [Concomitant]
     Active Substance: DENOSUMAB
  2. ATORVASTATIN CALCIUM. [Concomitant]
     Active Substance: ATORVASTATIN CALCIUM
  3. AMLODIPINE, VALSARTAN AND HYDROCHLOROTHIAZIDE [Concomitant]
     Active Substance: AMLODIPINE BESYLATE\HYDROCHLOROTHIAZIDE\VALSARTAN
  4. PRESERVISION AREDS [Concomitant]
     Active Substance: MINERALS\VITAMINS
  5. OXYCODONE [Concomitant]
     Active Substance: OXYCODONE
  6. COMETRIQ [Suspect]
     Active Substance: CABOZANTINIB S-MALATE
     Indication: THYROID CANCER
     Dosage: 60 MG, QD
     Route: 048
     Dates: start: 20180914
  7. COENZYME Q10 [Concomitant]
     Active Substance: UBIDECARENONE
  8. ASPIR LOW [Concomitant]
     Active Substance: ASPIRIN
  9. IBUPROFEN. [Concomitant]
     Active Substance: IBUPROFEN
  10. SYNTHROID [Concomitant]
     Active Substance: LEVOTHYROXINE SODIUM
  11. OMEGA 3 6 9 [Concomitant]
     Active Substance: FISH OIL
  12. HYDROCHLOROTHIAZIDE. [Concomitant]
     Active Substance: HYDROCHLOROTHIAZIDE
  13. ONDANSETRON [Concomitant]
     Active Substance: ONDANSETRON
  14. GABAPENTIN. [Concomitant]
     Active Substance: GABAPENTIN
  15. CENTRUM [Concomitant]
     Active Substance: VITAMINS

REACTIONS (2)
  - Lower limb fracture [Unknown]
  - Arthropathy [Unknown]

NARRATIVE: CASE EVENT DATE: 201812
